FAERS Safety Report 9020272 (Version 1)
Quarter: 2013Q1

REPORT INFORMATION
  Report Type: Spontaneous
  Country: US (occurrence: US)
  Receive Date: 20130119
  Receipt Date: 20130119
  Transmission Date: 20140127
  Serious: No
  Sender: FDA-Public Use
  Company Number: US-ALLERGAN-1209552US

PATIENT
  Age: 53 Year
  Sex: Female

DRUGS (7)
  1. BOTOX COSMETIC [Suspect]
     Indication: SKIN WRINKLING
     Dosage: 20 UNITS, SINGLE
     Route: 030
     Dates: start: 20120228, end: 20120228
  2. BOTOX COSMETIC [Suspect]
     Indication: SKIN WRINKLING
     Dosage: UNK
     Route: 030
     Dates: start: 20120228, end: 20120228
  3. BOTOX COSMETIC [Suspect]
     Dosage: 5 UNITS, SINGLE
     Route: 030
     Dates: start: 20120327, end: 20120327
  4. BOTOX COSMETIC [Suspect]
     Dosage: 20 UNITS, SINGLE
     Route: 030
     Dates: start: 20120508, end: 20120508
  5. ORAL CONTRACEPTIVE NOS [Concomitant]
     Indication: CONTRACEPTION
     Dosage: UNK
     Route: 048
  6. CO Q-10 [Concomitant]
     Indication: NUTRITIONAL SUPPLEMENTATION
     Dosage: UNK
     Route: 048
  7. OMEGA 3 [Concomitant]
     Indication: NUTRITIONAL SUPPLEMENTATION
     Dosage: UNK
     Route: 048

REACTIONS (3)
  - Injection site swelling [Not Recovered/Not Resolved]
  - Eyelid ptosis [Unknown]
  - Drug ineffective [Unknown]
